FAERS Safety Report 4684349-3 (Version None)
Quarter: 2005Q2

REPORT INFORMATION
  Report Type: 
  Country: None (occurrence: None)
  Receive Date: 20050531
  Receipt Date: 20040713
  Transmission Date: 20051028
  Serious: Yes (Other)
  Sender: FDA-Public Use
  Company Number: 200415304US

PATIENT
  Sex: Male

DRUGS (1)
  1. LOVENOX [Suspect]
     Indication: MYOCARDIAL INFARCTION
     Dosage: 100 MG Q12H
     Dates: start: 20040630, end: 20030710

REACTIONS (2)
  - HAEMOGLOBIN DECREASED [None]
  - RETROPERITONEAL HAEMORRHAGE [None]
